FAERS Safety Report 7244669-5 (Version None)
Quarter: 2011Q1

REPORT INFORMATION
  Report Type: 
  Country: None (occurrence: None)
  Receive Date: 20110125
  Receipt Date: 20101130
  Transmission Date: 20110831
  Serious: No
  Sender: FDA-Public Use
  Company Number: US-MYLANLABS-2010S1021923

PATIENT
  Sex: Male

DRUGS (2)
  1. CLONIDINE [Suspect]
     Indication: BLOOD PRESSURE INCREASED
     Dosage: QW
     Route: 062
     Dates: start: 20101127, end: 20101130
  2. LISINOPRIL [Concomitant]
     Indication: BLOOD PRESSURE INCREASED

REACTIONS (3)
  - DRUG INEFFECTIVE [None]
  - FLUSHING [None]
  - BLOOD PRESSURE INCREASED [None]
